FAERS Safety Report 12294378 (Version 4)
Quarter: 2016Q4

REPORT INFORMATION
  Report Type: Spontaneous
  Country: CA (occurrence: CA)
  Receive Date: 20160422
  Receipt Date: 20161213
  Transmission Date: 20170207
  Serious: Yes (Other)
  Sender: FDA-Public Use
  Company Number: CA-ROCHE-1743827

PATIENT
  Age: 72 Year
  Sex: Female

DRUGS (8)
  1. ACETAMINOPHEN. [Concomitant]
     Active Substance: ACETAMINOPHEN
  2. REMICADE [Suspect]
     Active Substance: INFLIXIMAB
     Indication: PRODUCT USED FOR UNKNOWN INDICATION
     Dosage: 300MG DAILY FOR 6 WEEKS
     Route: 042
     Dates: start: 20030804, end: 20060330
  3. ACTEMRA [Suspect]
     Active Substance: TOCILIZUMAB
     Indication: PRODUCT USED FOR UNKNOWN INDICATION
     Route: 042
     Dates: start: 20061127, end: 20160120
  4. METHOTREXATE SODIUM. [Suspect]
     Active Substance: METHOTREXATE SODIUM
     Indication: RHEUMATOID ARTHRITIS
     Dosage: THERAPY DURATION: 14 YEARS
     Route: 048
     Dates: start: 200304, end: 20160316
  5. METHOTREXATE SODIUM. [Suspect]
     Active Substance: METHOTREXATE SODIUM
     Route: 058
  6. CELEBREX [Concomitant]
     Active Substance: CELECOXIB
  7. MORPHINE [Concomitant]
     Active Substance: MORPHINE
  8. REMICADE [Suspect]
     Active Substance: INFLIXIMAB
     Route: 042

REACTIONS (13)
  - Lung abscess [Not Recovered/Not Resolved]
  - Treatment failure [Unknown]
  - Fungal infection [Not Recovered/Not Resolved]
  - Hypersensitivity [Not Recovered/Not Resolved]
  - Drug ineffective [Unknown]
  - Drug intolerance [Unknown]
  - Fungal infection [Unknown]
  - Joint ankylosis [Unknown]
  - Arthralgia [Unknown]
  - Pain [Not Recovered/Not Resolved]
  - Lung abscess [Unknown]
  - Fatigue [Not Recovered/Not Resolved]
  - Joint ankylosis [Not Recovered/Not Resolved]
